FAERS Safety Report 22255337 (Version 4)
Quarter: 2023Q2

REPORT INFORMATION
  Report Type: Spontaneous
  Country: PT (occurrence: PT)
  Receive Date: 20230426
  Receipt Date: 20230515
  Transmission Date: 20230721
  Serious: Yes (Other)
  Sender: FDA-Public Use
  Company Number: PT-ROCHE-3329125

PATIENT
  Age: 75 Year
  Sex: Female
  Weight: 69 kg

DRUGS (48)
  1. RITUXIMAB [Suspect]
     Active Substance: RITUXIMAB
     Dosage: 1ST CYCLE
     Route: 065
     Dates: start: 2009, end: 2010
  2. RITUXIMAB [Suspect]
     Active Substance: RITUXIMAB
     Dosage: 2ND CYCLE
     Route: 065
     Dates: start: 20130401, end: 20130501
  3. RITUXIMAB [Suspect]
     Active Substance: RITUXIMAB
     Dosage: 3RD SYSTEM START DATE
     Route: 065
     Dates: start: 201607, end: 201608
  4. RITUXIMAB [Suspect]
     Active Substance: RITUXIMAB
     Dosage: 4TH CYCLE
     Route: 065
     Dates: start: 20190601, end: 20191020
  5. RITUXIMAB [Suspect]
     Active Substance: RITUXIMAB
     Dosage: 5TH CYCLE
     Route: 065
     Dates: start: 202011, end: 202102
  6. RITUXIMAB [Suspect]
     Active Substance: RITUXIMAB
     Dosage: 6TH LINE
     Route: 065
     Dates: start: 20221101, end: 20230220
  7. CYCLOPHOSPHAMIDE [Suspect]
     Active Substance: CYCLOPHOSPHAMIDE
     Dosage: 1ST CYCLE
     Route: 065
     Dates: start: 2009, end: 2010
  8. CYCLOPHOSPHAMIDE [Suspect]
     Active Substance: CYCLOPHOSPHAMIDE
     Dosage: 2ND CYCLE
     Route: 065
     Dates: start: 201304, end: 201305
  9. CYCLOPHOSPHAMIDE [Suspect]
     Active Substance: CYCLOPHOSPHAMIDE
     Dosage: 3RD SYSTEM START DATE
     Route: 065
     Dates: start: 201607, end: 201608
  10. CYCLOPHOSPHAMIDE [Suspect]
     Active Substance: CYCLOPHOSPHAMIDE
     Dosage: 4TH CYCLE
     Route: 065
     Dates: start: 20190601, end: 20191020
  11. CYCLOPHOSPHAMIDE [Suspect]
     Active Substance: CYCLOPHOSPHAMIDE
     Dosage: 5TH CYCLE
     Route: 065
     Dates: start: 202011, end: 202102
  12. CYCLOPHOSPHAMIDE [Suspect]
     Active Substance: CYCLOPHOSPHAMIDE
     Dosage: 6TH LINE
     Route: 065
     Dates: start: 20221101, end: 20230220
  13. PREDNISONE [Suspect]
     Active Substance: PREDNISONE
     Dosage: 1ST CYCLE
     Route: 065
     Dates: start: 2009, end: 2010
  14. PREDNISONE [Suspect]
     Active Substance: PREDNISONE
     Dosage: 2ND CYCLE
     Route: 065
     Dates: start: 201304, end: 201305
  15. PREDNISONE [Suspect]
     Active Substance: PREDNISONE
     Dosage: 3RD SYSTEM START
     Route: 065
     Dates: start: 201607, end: 201608
  16. PREDNISONE [Suspect]
     Active Substance: PREDNISONE
     Dosage: 4TH CYCLE
     Route: 065
     Dates: start: 20190601, end: 20191020
  17. PREDNISONE [Suspect]
     Active Substance: PREDNISONE
     Dosage: 5TH CYCLE
     Route: 065
     Dates: start: 202011, end: 202102
  18. PREDNISONE [Suspect]
     Active Substance: PREDNISONE
     Dosage: 6TH LINE
     Route: 065
     Dates: start: 20221101, end: 20230220
  19. OXALIPLATIN [Suspect]
     Active Substance: OXALIPLATIN
     Dosage: FREQ: 2 WEK; 1ST CYCLE
     Route: 065
     Dates: start: 2009, end: 2010
  20. OXALIPLATIN [Suspect]
     Active Substance: OXALIPLATIN
     Dosage: FREQ: 2 WEK; 2ND CYCLE
     Route: 065
     Dates: start: 201304, end: 201305
  21. OXALIPLATIN [Suspect]
     Active Substance: OXALIPLATIN
     Dosage: FREQ: 2 WK; 3RD SYSTEM START DATE
     Route: 065
     Dates: start: 201607, end: 201608
  22. OXALIPLATIN [Suspect]
     Active Substance: OXALIPLATIN
     Dosage: FREQ: 2 WK; 4TH CYCLE
     Route: 065
     Dates: start: 20190601, end: 20191020
  23. OXALIPLATIN [Suspect]
     Active Substance: OXALIPLATIN
     Dosage: FREQ: 2WK; 5TH CYCLE
     Route: 065
     Dates: start: 202011, end: 202102
  24. OXALIPLATIN [Suspect]
     Active Substance: OXALIPLATIN
     Dosage: FREQ: 2 WK; 6TH LINE
     Route: 065
     Dates: start: 20221101, end: 20230220
  25. GEMCITABINE [Suspect]
     Active Substance: GEMCITABINE
     Dosage: FREQ: 2 WK; 1ST CYCLE
     Route: 065
     Dates: start: 2009, end: 2010
  26. GEMCITABINE [Suspect]
     Active Substance: GEMCITABINE
     Dosage: FREQ: 2 WK; 2ND CYCLE
     Route: 065
     Dates: start: 201304, end: 201305
  27. GEMCITABINE [Suspect]
     Active Substance: GEMCITABINE
     Dosage: FREQ: 2 WK; 3RD SYSTEM START DATE
     Route: 065
     Dates: start: 201607, end: 201608
  28. GEMCITABINE [Suspect]
     Active Substance: GEMCITABINE
     Dosage: FREQ: 2 WK; 4TH CYCLE
     Route: 065
     Dates: start: 20190601, end: 20191020
  29. GEMCITABINE [Suspect]
     Active Substance: GEMCITABINE
     Dosage: FREQ: 2 WK; 5TH CYCLE
     Route: 065
     Dates: start: 202011, end: 202102
  30. GEMCITABINE [Suspect]
     Active Substance: GEMCITABINE
     Dosage: FREQ: 2 WK; 6TH LINE
     Route: 065
     Dates: start: 20221101, end: 20230220
  31. DOXORUBICIN [Suspect]
     Active Substance: DOXORUBICIN
     Dosage: 1ST CYCLE
     Route: 065
     Dates: start: 2009, end: 2010
  32. DOXORUBICIN [Suspect]
     Active Substance: DOXORUBICIN
     Dosage: 2ND CYCLE
     Route: 065
     Dates: start: 201304, end: 201305
  33. DOXORUBICIN [Suspect]
     Active Substance: DOXORUBICIN
     Dosage: 3RD SYSTEM START
     Route: 065
     Dates: start: 201607, end: 201608
  34. DOXORUBICIN [Suspect]
     Active Substance: DOXORUBICIN
     Dosage: 4TH CYCLE
     Route: 065
     Dates: start: 20190601, end: 20191020
  35. DOXORUBICIN [Suspect]
     Active Substance: DOXORUBICIN
     Dosage: 5TH CYCLE
     Route: 065
     Dates: start: 202011, end: 202102
  36. DOXORUBICIN [Suspect]
     Active Substance: DOXORUBICIN
     Dosage: 6TH LINE
     Route: 065
     Dates: start: 20221101, end: 20230220
  37. BENDAMUSTINE [Suspect]
     Active Substance: BENDAMUSTINE
     Dosage: 1ST CYCLE
     Route: 065
     Dates: start: 2009, end: 2010
  38. BENDAMUSTINE [Suspect]
     Active Substance: BENDAMUSTINE
     Dosage: 2ND CYCLE
     Route: 065
     Dates: start: 201304, end: 201305
  39. BENDAMUSTINE [Suspect]
     Active Substance: BENDAMUSTINE
     Dosage: 3RD SYSTEM START DATE
     Route: 065
     Dates: start: 201607, end: 201608
  40. BENDAMUSTINE [Suspect]
     Active Substance: BENDAMUSTINE
     Dosage: 4TH CYCLE
     Route: 065
     Dates: start: 20190601, end: 20191020
  41. BENDAMUSTINE [Suspect]
     Active Substance: BENDAMUSTINE
     Dosage: 5TH CYCLE
     Route: 065
     Dates: start: 202011, end: 202102
  42. BENDAMUSTINE [Suspect]
     Active Substance: BENDAMUSTINE
     Dosage: 6TH LINE
     Route: 065
     Dates: start: 20221101, end: 20230220
  43. VINCRISTINE [Suspect]
     Active Substance: VINCRISTINE
     Dosage: 1ST CYCLE
     Route: 065
     Dates: start: 2009, end: 2010
  44. VINCRISTINE [Suspect]
     Active Substance: VINCRISTINE
     Dosage: 2ND CYCLE
     Route: 065
     Dates: start: 201304, end: 201305
  45. VINCRISTINE [Suspect]
     Active Substance: VINCRISTINE
     Dosage: 3RD SYSTEM START DATE
     Route: 065
     Dates: start: 201607, end: 201608
  46. VINCRISTINE [Suspect]
     Active Substance: VINCRISTINE
     Dosage: 4TH CYCLE
     Route: 065
     Dates: start: 20190601, end: 20191020
  47. VINCRISTINE [Suspect]
     Active Substance: VINCRISTINE
     Dosage: 5TH CYCLE
     Route: 065
     Dates: start: 202011, end: 202102
  48. VINCRISTINE [Suspect]
     Active Substance: VINCRISTINE
     Dosage: 6TH LINE
     Route: 065
     Dates: start: 20221101, end: 20230220

REACTIONS (5)
  - Lymphoma [Unknown]
  - Metastasis [Unknown]
  - Splenic marginal zone lymphoma [Unknown]
  - Impaired work ability [Unknown]
  - Ill-defined disorder [Unknown]
